FAERS Safety Report 8969803 (Version 1)
Quarter: 2012Q4

REPORT INFORMATION
  Report Type: 
  Country: MY (occurrence: MY)
  Receive Date: 20121218
  Receipt Date: 20121218
  Transmission Date: 20130627
  Serious: Yes (Other)
  Sender: FDA-Public Use
  Company Number: MY-SANOFI-AVENTIS-2012SA088934

PATIENT
  Age: 44 Year
  Sex: Female

DRUGS (8)
  1. PLAQUENIL [Suspect]
     Indication: SYSTEMIC LUPUS ERYTHEMATOSUS
     Route: 048
  2. LESTRIC [Suspect]
     Indication: HIGH CHOLESTEROL
     Route: 048
  3. NAZOL [Suspect]
     Indication: THROMBOCYTOPENIA
     Route: 048
  4. SANDIMMUN NEORAL [Suspect]
     Indication: SYSTEMIC LUPUS ERYTHEMATOSUS
     Route: 048
  5. PERINDOPRIL [Concomitant]
  6. PREDNISOLONE [Concomitant]
  7. CALCITRIOL [Concomitant]
  8. AMLODIPINE [Concomitant]

REACTIONS (4)
  - Rhabdomyolysis [Not Recovered/Not Resolved]
  - Renal failure acute [Not Recovered/Not Resolved]
  - Hepatitis [Not Recovered/Not Resolved]
  - Jaundice [Not Recovered/Not Resolved]
